FAERS Safety Report 9735540 (Version 2)
Quarter: 2015Q3

REPORT INFORMATION
  Report Type: Spontaneous
  Country: US (occurrence: US)
  Receive Date: 20131206
  Receipt Date: 20150804
  Transmission Date: 20151125
  Serious: No
  Sender: FDA-Public Use
  Company Number: US-GILEAD-2009-0023648

PATIENT
  Age: 73 Year
  Sex: Female
  Weight: 66.68 kg

DRUGS (9)
  1. ATENOLOL. [Concomitant]
     Active Substance: ATENOLOL
  2. COZAAR [Concomitant]
     Active Substance: LOSARTAN POTASSIUM
  3. LETAIRIS [Suspect]
     Active Substance: AMBRISENTAN
     Indication: PULMONARY ARTERIAL HYPERTENSION
     Route: 048
     Dates: start: 20090115, end: 20090806
  4. ADVAIR HFA [Concomitant]
     Active Substance: FLUTICASONE PROPIONATE\SALMETEROL XINAFOATE
  5. CITRACAL [Concomitant]
     Active Substance: CALCIUM CITRATE
  6. OXYGEN. [Concomitant]
     Active Substance: OXYGEN
  7. METFORMIN [Concomitant]
     Active Substance: METFORMIN HYDROCHLORIDE
  8. HYDROCHLOROTHIAZIDE/TRIAMTERENE [Concomitant]
  9. SYNTHROID [Concomitant]
     Active Substance: LEVOTHYROXINE SODIUM

REACTIONS (4)
  - Arthralgia [Unknown]
  - Headache [Unknown]
  - Dyspnoea [Unknown]
  - Fluid retention [Unknown]
